FAERS Safety Report 7399199-7 (Version None)
Quarter: 2011Q1

REPORT INFORMATION
  Report Type: 
  Country: None (occurrence: None)
  Receive Date: 20110328
  Receipt Date: 20110317
  Transmission Date: 20110831
  Serious: Yes (Death, Hospitalization)
  Sender: FDA-Public Use
  Company Number: BR-001534

PATIENT
  Sex: Male
  Weight: 18.5 kg

DRUGS (1)
  1. NAGLAZYME [Suspect]
     Indication: MUCOPOLYSACCHARIDOSIS VI
     Dosage: 0.8 MG/KG 1X/WEEK, 4 VIALS WEEKLY; INTRAVENOUS DRIP
     Route: 041
     Dates: start: 20071022

REACTIONS (6)
  - BRAIN COMPRESSION [None]
  - BRONCHOPNEUMONIA [None]
  - CYANOSIS CENTRAL [None]
  - RESPIRATORY FAILURE [None]
  - MULTI-ORGAN FAILURE [None]
  - SLEEP APNOEA SYNDROME [None]
